FAERS Safety Report 19619399 (Version 2)
Quarter: 2021Q3

REPORT INFORMATION
  Report Type: Spontaneous
  Country: SA (occurrence: SA)
  Receive Date: 20210727
  Receipt Date: 20210910
  Transmission Date: 20211014
  Serious: Yes (Hospitalization, Congenital Anomaly, Other)
  Sender: FDA-Public Use
  Company Number: SA-ALXN-A202108381

PATIENT
  Age: 43 Year
  Sex: Female

DRUGS (7)
  1. LOW MOLECULAR WEIGHT HEPARIN [Concomitant]
     Active Substance: UNSPECIFIED INGREDIENT
     Indication: PORTAL VEIN THROMBOSIS
     Dosage: 40 MG, QD
     Route: 058
  2. LOW MOLECULAR WEIGHT HEPARIN [Concomitant]
     Active Substance: UNSPECIFIED INGREDIENT
     Indication: PROPHYLAXIS
     Dosage: 20 MG, QD
     Route: 058
  3. RIVAROXABAN [Concomitant]
     Active Substance: RIVAROXABAN
     Indication: ANTICOAGULANT THERAPY
     Route: 065
  4. SOLIRIS [Suspect]
     Active Substance: ECULIZUMAB
     Dosage: 1200 MG, UNK
     Route: 065
  5. SOLIRIS [Suspect]
     Active Substance: ECULIZUMAB
     Dosage: 900 MG, Q2W
     Route: 065
  6. SOLIRIS [Suspect]
     Active Substance: ECULIZUMAB
     Indication: PAROXYSMAL NOCTURNAL HAEMOGLOBINURIA
     Dosage: 900 MG , Q2W
     Route: 065
  7. LOW MOLECULAR WEIGHT HEPARIN [Concomitant]
     Active Substance: UNSPECIFIED INGREDIENT
     Indication: MESENTERIC VEIN THROMBOSIS

REACTIONS (10)
  - Abdominal pain [Unknown]
  - Portal vein thrombosis [Unknown]
  - Macrosomia [Unknown]
  - Thrombocytopenia [Unknown]
  - Mesenteric vein thrombosis [Unknown]
  - General physical health deterioration [Unknown]
  - Exposure during pregnancy [Unknown]
  - Polyhydramnios [Not Recovered/Not Resolved]
  - Failed induction of labour [Unknown]
  - Anaemia [Unknown]

NARRATIVE: CASE EVENT DATE: 2015
